FAERS Safety Report 9443422 (Version 2)
Quarter: 2013Q3

REPORT INFORMATION
  Report Type: Report from Study
  Country: AU (occurrence: AU)
  Receive Date: 20130806
  Receipt Date: 20130925
  Transmission Date: 20140515
  Serious: Yes (Other)
  Sender: FDA-Public Use
  Company Number: PHHY2013AU083573

PATIENT
  Sex: Female

DRUGS (5)
  1. SANDOSTATIN LAR [Suspect]
     Indication: ACROMEGALY
     Dosage: 30 MG
     Route: 030
  2. INSULIN [Concomitant]
     Dosage: UNK UKN, UNK
     Route: 058
  3. STATIN//NYSTATIN [Concomitant]
     Dosage: UNK UKN, UNK
     Route: 048
  4. PANADEINE [Concomitant]
     Dosage: UNK UKN, UNK
  5. LYRICA [Concomitant]
     Dosage: UNK UKN, UNK

REACTIONS (4)
  - Transient global amnesia [Unknown]
  - Sleep apnoea syndrome [Unknown]
  - Somnambulism [Unknown]
  - Malaise [Unknown]
